FAERS Safety Report 6187951-5 (Version None)
Quarter: 2009Q2

REPORT INFORMATION
  Report Type: 
  Country: None (occurrence: None)
  Receive Date: 20090511
  Receipt Date: 20090511
  Transmission Date: 20091009
  Serious: Yes (Life-Threatening, Hospitalization)
  Sender: FDA-Public Use
  Company Number: None

PATIENT
  Age: 53 Year
  Sex: Female
  Weight: 61.2356 kg

DRUGS (3)
  1. LAMICTAL [Suspect]
     Indication: EPILEPSY
     Dosage: 100MG DAILY
  2. DEPAKOTE [Concomitant]
  3. THYROID TAB [Concomitant]

REACTIONS (8)
  - ANOREXIA [None]
  - BODY TEMPERATURE INCREASED [None]
  - DIPLOPIA [None]
  - DIZZINESS [None]
  - FATIGUE [None]
  - INCOHERENT [None]
  - NAUSEA [None]
  - TOXIC EPIDERMAL NECROLYSIS [None]
